FAERS Safety Report 7329347-6 (Version None)
Quarter: 2011Q1

REPORT INFORMATION
  Report Type: 
  Country: None (occurrence: None)
  Receive Date: 20110225
  Receipt Date: 20110225
  Transmission Date: 20110831
  Serious: Yes (Hospitalization)
  Sender: FDA-Public Use
  Company Number: None

PATIENT
  Age: 66 Year
  Sex: Male
  Weight: 92.08 kg

DRUGS (1)
  1. AMIODARONE HCL [Suspect]
     Indication: ATRIAL FIBRILLATION
     Dosage: 400 MG BID PO
     Route: 048
     Dates: start: 20090101, end: 20101201

REACTIONS (3)
  - DYSPNOEA EXERTIONAL [None]
  - PALPITATIONS [None]
  - HYPERTHYROIDISM [None]
